FAERS Safety Report 20695528 (Version 3)
Quarter: 2022Q3

REPORT INFORMATION
  Report Type: Spontaneous
  Country: GR (occurrence: GR)
  Receive Date: 20220411
  Receipt Date: 20220802
  Transmission Date: 20221026
  Serious: No
  Sender: FDA-Public Use
  Company Number: GR-PFIZER INC-202200415031

PATIENT
  Age: 9 Year
  Sex: Male
  Weight: 13 kg

DRUGS (3)
  1. GENOTROPIN [Suspect]
     Active Substance: SOMATROPIN
     Indication: Growth hormone deficiency
     Dosage: 0.9 ML, DAILY(0.9 ML X 5 DAYS )
     Dates: start: 20161222
  2. GENOTROPIN [Suspect]
     Active Substance: SOMATROPIN
     Dosage: 0.8 ML, DAILY (0.8 ML X 2 DAYS )
     Route: 058
     Dates: start: 20161222
  3. GENOTROPIN [Suspect]
     Active Substance: SOMATROPIN
     Dosage: UNK

REACTIONS (1)
  - Device issue [Unknown]
